FAERS Safety Report 16467481 (Version 2)
Quarter: 2019Q3

REPORT INFORMATION
  Report Type: Spontaneous
  Country: DE (occurrence: DE)
  Receive Date: 20190624
  Receipt Date: 20190805
  Transmission Date: 20191004
  Serious: Yes (Hospitalization, Other)
  Sender: FDA-Public Use
  Company Number: DE-ASTELLAS-2019US025361

PATIENT
  Sex: Female

DRUGS (1)
  1. ADVAGRAF [Suspect]
     Active Substance: TACROLIMUS
     Indication: PRODUCT USED FOR UNKNOWN INDICATION
     Dosage: UNK UNK, TWICE DAILY
     Route: 065

REACTIONS (6)
  - Coma [Unknown]
  - Renal transplant failure [Unknown]
  - Immunosuppressant drug level increased [Unknown]
  - Overdose [Unknown]
  - Inappropriate schedule of product administration [Unknown]
  - Neurological symptom [Unknown]
